FAERS Safety Report 5635771-X (Version None)
Quarter: 2008Q1

REPORT INFORMATION
  Report Type: 
  Country: None (occurrence: None)
  Receive Date: 20080220
  Receipt Date: 20070913
  Transmission Date: 20080703
  Serious: Yes (Hospitalization)
  Sender: FDA-Public Use
  Company Number: 865#9#2007-00011

PATIENT
  Age: 67 Year
  Sex: Male

DRUGS (25)
  1. ROTIGOTINE (DOSE UNKNOWN), PATCH (SILICONE) (ROTIGOTINE) [Suspect]
     Indication: PARKINSON'S DISEASE
     Dosage: SEE IMAGE; TRANSDERMAL
     Route: 062
     Dates: start: 20070329, end: 20070405
  2. ROTIGOTINE (DOSE UNKNOWN), PATCH (SILICONE) (ROTIGOTINE) [Suspect]
     Indication: PARKINSON'S DISEASE
     Dosage: SEE IMAGE; TRANSDERMAL
     Route: 062
     Dates: start: 20070405, end: 20070412
  3. ROTIGOTINE (DOSE UNKNOWN), PATCH (SILICONE) (ROTIGOTINE) [Suspect]
     Indication: PARKINSON'S DISEASE
     Dosage: SEE IMAGE; TRANSDERMAL
     Route: 062
     Dates: start: 20070412, end: 20070419
  4. ROTIGOTINE (DOSE UNKNOWN), PATCH (SILICONE) (ROTIGOTINE) [Suspect]
     Indication: PARKINSON'S DISEASE
     Dosage: SEE IMAGE; TRANSDERMAL
     Route: 062
     Dates: start: 20070419, end: 20070426
  5. ROTIGOTINE (DOSE UNKNOWN), PATCH (SILICONE) (ROTIGOTINE) [Suspect]
     Indication: PARKINSON'S DISEASE
     Dosage: SEE IMAGE; TRANSDERMAL
     Route: 062
     Dates: start: 20070426, end: 20070501
  6. ROTIGOTINE (DOSE UNKNOWN), PATCH (SILICONE) (ROTIGOTINE) [Suspect]
     Indication: PARKINSON'S DISEASE
     Dosage: SEE IMAGE; TRANSDERMAL
     Route: 062
     Dates: start: 20070501, end: 20070510
  7. ROTIGOTINE (DOSE UNKNOWN), PATCH (SILICONE) (ROTIGOTINE) [Suspect]
     Indication: PARKINSON'S DISEASE
     Dosage: SEE IMAGE; TRANSDERMAL
     Route: 062
     Dates: start: 20070510, end: 20070515
  8. ROTIGOTINE (DOSE UNKNOWN), PATCH (SILICONE) (ROTIGOTINE) [Suspect]
     Indication: PARKINSON'S DISEASE
     Dosage: SEE IMAGE; TRANSDERMAL
     Route: 062
     Dates: start: 20070515, end: 20070913
  9. ROTIGOTINE (DOSE UNKNOWN), PATCH (SILICONE) (ROTIGOTINE) [Suspect]
     Indication: PARKINSON'S DISEASE
     Dosage: SEE IMAGE; TRANSDERMAL
     Route: 062
     Dates: start: 20070913, end: 20070914
  10. ROTIGOTINE (DOSE UNKNOWN), PATCH (SILICONE) (ROTIGOTINE) [Suspect]
     Indication: PARKINSON'S DISEASE
     Dosage: SEE IMAGE; TRANSDERMAL
     Route: 062
     Dates: start: 20070914, end: 20070915
  11. LEVODOPA-CARBIDOPA (CARBIDOPA, LEVODOPA) [Concomitant]
  12. SELEGILINE HYDROCHLORIDE (SELEGILINE HYDRCHLORIDE) [Concomitant]
  13. TEPRENONE (TEPRENONE) [Concomitant]
  14. DIMETICONE (DOMETICONE) [Concomitant]
  15. FLUNITRAZEPAM (FLUNITRAZEPAM) [Concomitant]
  16. NITRAZEPAM [Concomitant]
  17. MAGNESIUM OXIDE (MAGNESIUM OXIDE) [Concomitant]
  18. LORAZEPAM [Concomitant]
  19. KETOPROFEN [Concomitant]
  20. CLONAZEPAM [Concomitant]
  21. ACETATED RINGER'S SOLUTION [Concomitant]
  22. QUETIAPINE SUMARATE (QUETIAPINE FUMARATE) [Concomitant]
  23. OLANZAPINE [Concomitant]
  24. BROTIZOLAM (BROTIZOLAM) [Concomitant]
  25. MIANSERIN HYDROCHLORIDE (MIANSERIN HYDROCHLORIDE) [Concomitant]

REACTIONS (3)
  - DELUSION [None]
  - HALLUCINATION, AUDITORY [None]
  - PSYCHOTIC DISORDER [None]
